FAERS Safety Report 9270339 (Version 2)
Quarter: 2013Q2

REPORT INFORMATION
  Report Type: Report from Study
  Country: JP (occurrence: JP)
  Receive Date: 20130503
  Receipt Date: 20130529
  Transmission Date: 20140414
  Serious: Yes (Hospitalization)
  Sender: FDA-Public Use
  Company Number: JP-UCBSA-084835

PATIENT
  Sex: Male

DRUGS (56)
  1. E KEPPRA [Suspect]
     Indication: SIMPLE PARTIAL SEIZURES
     Route: 048
     Dates: start: 20111003, end: 20111021
  2. E KEPPRA [Suspect]
     Indication: PARTIAL SEIZURES WITH SECONDARY GENERALISATION
     Route: 048
     Dates: start: 20111003, end: 20111021
  3. E KEPPRA [Suspect]
     Indication: COMPLEX PARTIAL SEIZURES
     Route: 048
     Dates: start: 20111003, end: 20111021
  4. E KEPPRA [Suspect]
     Indication: SIMPLE PARTIAL SEIZURES
     Route: 048
     Dates: start: 20111021, end: 20111103
  5. E KEPPRA [Suspect]
     Indication: PARTIAL SEIZURES WITH SECONDARY GENERALISATION
     Route: 048
     Dates: start: 20111021, end: 20111103
  6. E KEPPRA [Suspect]
     Indication: COMPLEX PARTIAL SEIZURES
     Route: 048
     Dates: start: 20111021, end: 20111103
  7. E KEPPRA [Suspect]
     Indication: SIMPLE PARTIAL SEIZURES
     Route: 048
     Dates: start: 20111104, end: 20120710
  8. E KEPPRA [Suspect]
     Indication: PARTIAL SEIZURES WITH SECONDARY GENERALISATION
     Route: 048
     Dates: start: 20111104, end: 20120710
  9. E KEPPRA [Suspect]
     Indication: COMPLEX PARTIAL SEIZURES
     Route: 048
     Dates: start: 20111104, end: 20120710
  10. E KEPPRA [Suspect]
     Indication: SIMPLE PARTIAL SEIZURES
     Route: 048
     Dates: start: 20120711, end: 20121010
  11. E KEPPRA [Suspect]
     Indication: PARTIAL SEIZURES WITH SECONDARY GENERALISATION
     Route: 048
     Dates: start: 20120711, end: 20121010
  12. E KEPPRA [Suspect]
     Indication: COMPLEX PARTIAL SEIZURES
     Route: 048
     Dates: start: 20120711, end: 20121010
  13. TEGRETOL [Concomitant]
     Indication: PARTIAL SEIZURES WITH SECONDARY GENERALISATION
     Dosage: DAILY DOSE: 800 MG
     Route: 048
     Dates: end: 20111020
  14. TEGRETOL [Concomitant]
     Indication: SIMPLE PARTIAL SEIZURES
     Dosage: DAILY DOSE: 800 MG
     Route: 048
     Dates: end: 20111020
  15. TEGRETOL [Concomitant]
     Indication: COMPLEX PARTIAL SEIZURES
     Dosage: DAILY DOSE: 800 MG
     Route: 048
     Dates: end: 20111020
  16. TEGRETOL [Concomitant]
     Indication: PARTIAL SEIZURES WITH SECONDARY GENERALISATION
     Dosage: DAILY DOSE: 700 MG
     Route: 048
     Dates: start: 20111021, end: 20111121
  17. TEGRETOL [Concomitant]
     Indication: SIMPLE PARTIAL SEIZURES
     Dosage: DAILY DOSE: 700 MG
     Route: 048
     Dates: start: 20111021, end: 20111121
  18. TEGRETOL [Concomitant]
     Indication: COMPLEX PARTIAL SEIZURES
     Dosage: DAILY DOSE: 700 MG
     Route: 048
     Dates: start: 20111021, end: 20111121
  19. TEGRETOL [Concomitant]
     Indication: PARTIAL SEIZURES WITH SECONDARY GENERALISATION
     Dosage: DAILY DOSE: 800 MG
     Route: 048
     Dates: start: 20111122, end: 20111205
  20. TEGRETOL [Concomitant]
     Indication: SIMPLE PARTIAL SEIZURES
     Dosage: DAILY DOSE: 800 MG
     Route: 048
     Dates: start: 20111122, end: 20111205
  21. TEGRETOL [Concomitant]
     Indication: COMPLEX PARTIAL SEIZURES
     Dosage: DAILY DOSE: 800 MG
     Route: 048
     Dates: start: 20111122, end: 20111205
  22. TEGRETOL [Concomitant]
     Indication: PARTIAL SEIZURES WITH SECONDARY GENERALISATION
     Dosage: DAILY DOSE: 900 MG
     Route: 048
     Dates: start: 20111206, end: 20120317
  23. TEGRETOL [Concomitant]
     Indication: SIMPLE PARTIAL SEIZURES
     Dosage: DAILY DOSE: 900 MG
     Route: 048
     Dates: start: 20111206, end: 20120317
  24. TEGRETOL [Concomitant]
     Indication: COMPLEX PARTIAL SEIZURES
     Dosage: DAILY DOSE: 900 MG
     Route: 048
     Dates: start: 20111206, end: 20120317
  25. TEGRETOL [Concomitant]
     Indication: PARTIAL SEIZURES WITH SECONDARY GENERALISATION
     Dosage: DAILY DOSE: 1000 MG
     Route: 048
     Dates: start: 20120318, end: 20121010
  26. TEGRETOL [Concomitant]
     Indication: SIMPLE PARTIAL SEIZURES
     Dosage: DAILY DOSE: 1000 MG
     Route: 048
     Dates: start: 20120318, end: 20121010
  27. TEGRETOL [Concomitant]
     Indication: COMPLEX PARTIAL SEIZURES
     Dosage: DAILY DOSE: 1000 MG
     Route: 048
     Dates: start: 20120318, end: 20121010
  28. LAMICTAL [Concomitant]
     Indication: SIMPLE PARTIAL SEIZURES
     Dosage: DAILY DOSE: 300 MG
     Route: 048
     Dates: end: 20111202
  29. LAMICTAL [Concomitant]
     Indication: COMPLEX PARTIAL SEIZURES
     Dosage: DAILY DOSE: 300 MG
     Route: 048
     Dates: end: 20111202
  30. LAMICTAL [Concomitant]
     Indication: PARTIAL SEIZURES WITH SECONDARY GENERALISATION
     Dosage: DAILY DOSE: 300 MG
     Route: 048
     Dates: end: 20111202
  31. LAMICTAL [Concomitant]
     Indication: SIMPLE PARTIAL SEIZURES
     Dosage: DAILY DOSE: 275 MG
     Route: 048
     Dates: start: 20111202, end: 20120106
  32. LAMICTAL [Concomitant]
     Indication: COMPLEX PARTIAL SEIZURES
     Dosage: DAILY DOSE: 275 MG
     Route: 048
     Dates: start: 20111202, end: 20120106
  33. LAMICTAL [Concomitant]
     Indication: PARTIAL SEIZURES WITH SECONDARY GENERALISATION
     Dosage: DAILY DOSE: 275 MG
     Route: 048
     Dates: start: 20111202, end: 20120106
  34. LAMICTAL [Concomitant]
     Indication: SIMPLE PARTIAL SEIZURES
     Dosage: DAILY DOSE: 250 MG
     Route: 048
     Dates: start: 20120107, end: 20120120
  35. LAMICTAL [Concomitant]
     Indication: COMPLEX PARTIAL SEIZURES
     Dosage: DAILY DOSE: 250 MG
     Route: 048
     Dates: start: 20120107, end: 20120120
  36. LAMICTAL [Concomitant]
     Indication: PARTIAL SEIZURES WITH SECONDARY GENERALISATION
     Dosage: DAILY DOSE: 250 MG
     Route: 048
     Dates: start: 20120107, end: 20120120
  37. LAMICTAL [Concomitant]
     Indication: SIMPLE PARTIAL SEIZURES
     Dosage: DAILY DOSE: 225 MG
     Route: 048
     Dates: start: 20120121, end: 20120204
  38. LAMICTAL [Concomitant]
     Indication: COMPLEX PARTIAL SEIZURES
     Dosage: DAILY DOSE: 225 MG
     Route: 048
     Dates: start: 20120121, end: 20120204
  39. LAMICTAL [Concomitant]
     Indication: PARTIAL SEIZURES WITH SECONDARY GENERALISATION
     Dosage: DAILY DOSE: 225 MG
     Route: 048
     Dates: start: 20120121, end: 20120204
  40. LAMICTAL [Concomitant]
     Indication: SIMPLE PARTIAL SEIZURES
     Dosage: DAILY DOSE: 200 MG
     Route: 048
     Dates: start: 20120205, end: 20120302
  41. LAMICTAL [Concomitant]
     Indication: COMPLEX PARTIAL SEIZURES
     Dosage: DAILY DOSE: 200 MG
     Route: 048
     Dates: start: 20120205, end: 20120302
  42. LAMICTAL [Concomitant]
     Indication: PARTIAL SEIZURES WITH SECONDARY GENERALISATION
     Dosage: DAILY DOSE: 200 MG
     Route: 048
     Dates: start: 20120205, end: 20120302
  43. LAMICTAL [Concomitant]
     Indication: SIMPLE PARTIAL SEIZURES
     Dosage: DAILY DOSE: 150 MG
     Route: 048
     Dates: start: 20120303, end: 20120330
  44. LAMICTAL [Concomitant]
     Indication: COMPLEX PARTIAL SEIZURES
     Dosage: DAILY DOSE: 150 MG
     Route: 048
     Dates: start: 20120303, end: 20120330
  45. LAMICTAL [Concomitant]
     Indication: PARTIAL SEIZURES WITH SECONDARY GENERALISATION
     Dosage: DAILY DOSE: 150 MG
     Route: 048
     Dates: start: 20120303, end: 20120330
  46. LAMICTAL [Concomitant]
     Indication: SIMPLE PARTIAL SEIZURES
     Dosage: DAILY DOSE: 200 MG
     Route: 048
     Dates: start: 20120331, end: 20120413
  47. LAMICTAL [Concomitant]
     Indication: COMPLEX PARTIAL SEIZURES
     Dosage: DAILY DOSE: 200 MG
     Route: 048
     Dates: start: 20120331, end: 20120413
  48. LAMICTAL [Concomitant]
     Indication: PARTIAL SEIZURES WITH SECONDARY GENERALISATION
     Dosage: DAILY DOSE: 200 MG
     Route: 048
     Dates: start: 20120331, end: 20120413
  49. CERCINE [Concomitant]
     Indication: PARTIAL SEIZURES WITH SECONDARY GENERALISATION
     Dosage: DAILY DOSE: 5 MG
     Route: 048
     Dates: end: 20121010
  50. CERCINE [Concomitant]
     Indication: SIMPLE PARTIAL SEIZURES
     Dosage: DAILY DOSE: 5 MG
     Route: 048
     Dates: end: 20121010
  51. CERCINE [Concomitant]
     Indication: COMPLEX PARTIAL SEIZURES
     Dosage: DAILY DOSE: 5 MG
     Route: 048
     Dates: end: 20121010
  52. ZYPREXA [Concomitant]
     Dosage: DAILY DOSE: 5 MG
     Route: 048
     Dates: end: 20121010
  53. URSO [Concomitant]
     Dosage: DAILY DOSE: 300 MG
     Route: 048
     Dates: end: 20121010
  54. HYDANTOL [Concomitant]
     Indication: SIMPLE PARTIAL SEIZURES
     Dosage: DAILY DOSE: 150 MG
     Route: 048
     Dates: start: 20120106, end: 20120120
  55. HYDANTOL [Concomitant]
     Indication: SIMPLE PARTIAL SEIZURES
     Dosage: DAILY DOSE: 12.5 MG
     Route: 048
     Dates: start: 20120318, end: 20121010
  56. ALEVIATIN [Concomitant]
     Indication: SIMPLE PARTIAL SEIZURES
     Dosage: DAILY DOSE: 200 MG
     Route: 048
     Dates: start: 20120121, end: 20121010

REACTIONS (1)
  - Psychiatric symptom [Unknown]
